FAERS Safety Report 9653163 (Version 2)
Quarter: 2014Q1

REPORT INFORMATION
  Report Type: Spontaneous
  Country: GB (occurrence: GB)
  Receive Date: 20131029
  Receipt Date: 20140129
  Transmission Date: 20141002
  Serious: Yes (Other)
  Sender: FDA-Public Use
  Company Number: GB-PFIZER INC-2013304466

PATIENT
  Age: 24 Year
  Sex: Female
  Weight: 62 kg

DRUGS (4)
  1. SERTRALINE HCL [Suspect]
     Indication: DEPRESSION
     Dosage: 50 MG, UNK
     Route: 048
     Dates: start: 20130926, end: 20131020
  2. SERTRALINE HCL [Suspect]
     Indication: ANXIETY
  3. SERTRALINE HCL [Suspect]
     Indication: BULIMIA NERVOSA
  4. MIRENA [Concomitant]
     Dosage: UNK

REACTIONS (4)
  - Anorgasmia [Recovering/Resolving]
  - Off label use [Recovered/Resolved]
  - Drug ineffective for unapproved indication [Unknown]
  - Drug ineffective [Unknown]
